FAERS Safety Report 9619358 (Version 2)
Quarter: 2013Q4

REPORT INFORMATION
  Report Type: Spontaneous
  Country: BG (occurrence: BG)
  Receive Date: 20131014
  Receipt Date: 20131107
  Transmission Date: 20140711
  Serious: Yes (Life-Threatening, Hospitalization, Other)
  Sender: FDA-Public Use
  Company Number: BG-ASTRAZENECA-2013SE75491

PATIENT
  Age: 67 Year
  Sex: Male

DRUGS (5)
  1. AXANUM [Suspect]
     Indication: ACUTE MYOCARDIAL INFARCTION
     Dosage: 81 MG/20 MG DAILY
     Route: 048
     Dates: start: 20130301
  2. BRILIQUE [Suspect]
     Indication: ACUTE MYOCARDIAL INFARCTION
     Route: 048
     Dates: start: 20130301, end: 20130417
  3. CONCOR [Concomitant]
  4. TRITACE [Concomitant]
  5. ROSUVANOR [Concomitant]

REACTIONS (2)
  - Ileus [Recovered/Resolved]
  - Thrombosis in device [Unknown]
